FAERS Safety Report 10499439 (Version 1)
Quarter: 2014Q4

REPORT INFORMATION
  Report Type: Spontaneous
  Country: US (occurrence: US)
  Receive Date: 20141006
  Receipt Date: 20141006
  Transmission Date: 20150528
  Serious: No
  Sender: FDA-Public Use
  Company Number: US-GILEAD-2014-0117053

PATIENT
  Age: 64 Year
  Sex: Female

DRUGS (4)
  1. REVATIO [Concomitant]
     Active Substance: SILDENAFIL CITRATE
  2. REMODULIN [Concomitant]
     Active Substance: TREPROSTINIL
  3. LETAIRIS [Suspect]
     Active Substance: AMBRISENTAN
     Indication: PRODUCT USED FOR UNKNOWN INDICATION
     Dosage: 10 MG, QD
     Route: 065
     Dates: start: 20120924
  4. WARFARIN [Concomitant]
     Active Substance: WARFARIN

REACTIONS (9)
  - Productive cough [Unknown]
  - Weight decreased [Unknown]
  - Dizziness [Unknown]
  - Depression [Unknown]
  - Unevaluable event [Unknown]
  - Sputum discoloured [Unknown]
  - Anxiety [Unknown]
  - Pain [Unknown]
  - Wheezing [Unknown]
